FAERS Safety Report 8209164-5 (Version None)
Quarter: 2012Q1

REPORT INFORMATION
  Report Type: 
  Country: None (occurrence: None)
  Receive Date: 20120314
  Receipt Date: 20120305
  Transmission Date: 20120608
  Serious: Yes (Other)
  Sender: FDA-Public Use
  Company Number: US-BAYER-2011-088338

PATIENT
  Age: 38 Year
  Sex: Female

DRUGS (13)
  1. METRONIDAZOLE [Concomitant]
     Dosage: 500 MG, BID
     Route: 048
     Dates: start: 20090905
  2. FAMOTIDINE [Concomitant]
     Dosage: 20MG, QD
     Route: 048
     Dates: start: 20090903
  3. ACETAMINOPHEN [Concomitant]
     Indication: PAIN
     Dosage: 5 MG/500MG, QID
     Route: 048
     Dates: start: 20090903, end: 20090910
  4. HYDROCODONE BITARTRATE AND ACETAMINOPHEN [Concomitant]
     Dosage: UNK
     Route: 048
     Dates: start: 20090905
  5. CICLOPIROX [Concomitant]
     Dosage: UNK
     Route: 061
     Dates: start: 20090808
  6. TRAZODONE HCL [Concomitant]
     Indication: SLEEP DISORDER
     Dosage: 150 MG, HS
     Route: 048
     Dates: start: 20090730
  7. WELLBUTRIN [Concomitant]
  8. ATIVAN [Concomitant]
  9. BUPROPION HYDROCHLORIDE [Concomitant]
     Dosage: 150 MG, UNK
     Route: 048
     Dates: start: 20090811
  10. YAZ [Suspect]
     Dosage: UNK
     Route: 048
     Dates: start: 20090101, end: 20090101
  11. LEVAQUIN [Concomitant]
     Dosage: 500 MG, UNK
     Route: 048
     Dates: start: 20090905
  12. CLONIDINE [Concomitant]
  13. PROZAC [Concomitant]

REACTIONS (4)
  - PAIN [None]
  - GALLBLADDER NON-FUNCTIONING [None]
  - CHOLECYSTITIS ACUTE [None]
  - INJURY [None]
